FAERS Safety Report 18589149 (Version 1)
Quarter: 2020Q4

REPORT INFORMATION
  Report Type: Spontaneous
  Country: DE (occurrence: DE)
  Receive Date: 20201208
  Receipt Date: 20201208
  Transmission Date: 20210114
  Serious: Yes (Hospitalization)
  Sender: FDA-Public Use
  Company Number: DE-DEXPHARM-20201078

PATIENT
  Age: 7 Year
  Sex: Female
  Weight: 34 kg

DRUGS (7)
  1. CYSTADROPS [Suspect]
     Active Substance: CYSTEAMINE HYDROCHLORIDE
     Indication: CYSTINOSIS
     Dosage: 5 DAILY
     Route: 047
  2. URO-TABLINEN [Suspect]
     Active Substance: NITROFURANTOIN
     Indication: URINARY TRACT INFECTION
     Dosage: 50MG; DAILY DOSE: 1 DF DOSAGE FORM EVERY DAYS
     Route: 048
  3. BICANORM [Suspect]
     Active Substance: SODIUM BICARBONATE
     Indication: FANCONI SYNDROME ACQUIRED
     Dosage: 1G; DAILY DOSE: 3 DF DOSAGE FORM EVERY DAYS 3 SEPARATED DOSES
     Route: 048
  4. PROCYSBI [Suspect]
     Active Substance: CYSTEAMINE BITARTRATE
     Indication: CYSTINOSIS
     Dosage: 75 MG; DAILY DOSE: 10 DF DOSAGE FORM EVERY DAYS 2 SEPARATED DOSES
     Route: 048
  5. REDUCTO-SPEZIAL [Suspect]
     Active Substance: POTASSIUM PHOSPHATE, MONOBASIC\SODIUM PHOSPHATE, DIBASIC, ANHYDROUS
     Indication: FANCONI SYNDROME ACQUIRED
     Dosage: 602/360MG; DAILY DOSE: 2 DF DOSAGE FORM EVERY DAYS 2 SEPARATED DOSES
     Route: 048
  6. VIGANTOLETTEN [Suspect]
     Active Substance: CHOLECALCIFEROL
     Indication: PROPHYLAXIS
     Dosage: 2000 IE; DAILY DOSE: 1 DF DOSAGE FORM EVERY DAYS
     Route: 048
  7. OMEPRAZOLE. [Suspect]
     Active Substance: OMEPRAZOLE
     Indication: PROPHYLAXIS AGAINST GASTROINTESTINAL ULCER
     Dosage: DAILY DOSE: 1 DF DOSAGE FORM EVERY DAYS
     Route: 048

REACTIONS (1)
  - Vomiting [Unknown]

NARRATIVE: CASE EVENT DATE: 20190807
